FAERS Safety Report 9813140 (Version 3)
Quarter: 2014Q2

REPORT INFORMATION
  Report Type: Spontaneous
  Country: US (occurrence: US)
  Receive Date: 20140113
  Receipt Date: 20140616
  Transmission Date: 20141212
  Serious: Yes (Other)
  Sender: FDA-Public Use
  Company Number: US-PFIZER INC-2014008033

PATIENT
  Age: 77 Year
  Sex: Female

DRUGS (2)
  1. XELJANZ [Suspect]
     Indication: RHEUMATOID ARTHRITIS
     Dosage: 5 MG, BID
     Route: 048
     Dates: start: 201310
  2. XELJANZ [Suspect]
     Dosage: 5 MG, BID
     Route: 048

REACTIONS (5)
  - Pneumonia [Recovered/Resolved]
  - Joint injury [Unknown]
  - Influenza [Unknown]
  - Fatigue [Unknown]
  - Asthenia [Unknown]
